FAERS Safety Report 9262904 (Version 1)
Quarter: 2013Q2

REPORT INFORMATION
  Report Type: Spontaneous
  Country: US (occurrence: None)
  Receive Date: 20130426
  Receipt Date: 20130426
  Transmission Date: 20140414
  Serious: Yes (Life-Threatening)
  Sender: FDA-Public Use
  Company Number: None

PATIENT
  Age: 80 Year
  Sex: Male
  Weight: 108 kg

DRUGS (4)
  1. PROTAMINE [Suspect]
     Indication: HEART VALVE REPLACEMENT
     Route: 042
     Dates: start: 20121213
  2. DOPAMINE [Concomitant]
  3. DOBUTAMINE [Concomitant]
  4. HEPARIN [Concomitant]

REACTIONS (2)
  - Drug hypersensitivity [None]
  - Swelling [None]
